FAERS Safety Report 22358377 (Version 1)
Quarter: 2023Q2

REPORT INFORMATION
  Report Type: Spontaneous
  Country: FR (occurrence: FR)
  Receive Date: 20230524
  Receipt Date: 20230524
  Transmission Date: 20230722
  Serious: Yes (Hospitalization)
  Sender: FDA-Public Use
  Company Number: None

PATIENT
  Age: 63 Year
  Sex: Male

DRUGS (1)
  1. OBINUTUZUMAB [Suspect]
     Active Substance: OBINUTUZUMAB
     Indication: Nephrotic syndrome
     Dosage: UKNOWN DOSE
     Route: 042
     Dates: start: 20210407, end: 202210

REACTIONS (2)
  - Organising pneumonia [Recovered/Resolved]
  - Coronavirus infection [Recovered/Resolved]

NARRATIVE: CASE EVENT DATE: 20220701
